FAERS Safety Report 6636369-7 (Version None)
Quarter: 2010Q1

REPORT INFORMATION
  Report Type: 
  Country: None (occurrence: None)
  Receive Date: 20100316
  Receipt Date: 20100308
  Transmission Date: 20100710
  Serious: Yes (Hospitalization)
  Sender: FDA-Public Use
  Company Number: FR-ASTRAZENECA-2010SE10825

PATIENT
  Age: 23604 Day
  Sex: Male

DRUGS (11)
  1. NEXIUM [Suspect]
     Route: 048
     Dates: start: 20091201
  2. AUGMENTIN [Suspect]
     Route: 048
     Dates: start: 20100112, end: 20100113
  3. OFLOCET [Suspect]
     Indication: LUNG INFECTION
     Route: 048
     Dates: start: 20100112, end: 20100113
  4. LOVENOX [Suspect]
     Route: 058
     Dates: start: 20100112, end: 20100113
  5. TIENAM [Suspect]
     Indication: LUNG INFECTION
     Route: 042
     Dates: start: 20100113, end: 20100121
  6. AMIKACINE WINTHROP [Suspect]
     Indication: LUNG INFECTION
     Route: 042
     Dates: start: 20100113, end: 20100121
  7. ARIXTRA [Suspect]
     Dosage: 7.5MG/0.6ML, 7.5MG DAILY
     Route: 058
     Dates: start: 20100113, end: 20100127
  8. SOLUPRED [Suspect]
     Route: 048
     Dates: start: 20100116
  9. ATARAX [Suspect]
     Route: 048
     Dates: start: 20100116
  10. NORSET [Suspect]
     Route: 048
     Dates: start: 20091201
  11. TARDYFERON [Suspect]
     Route: 048
     Dates: start: 20091201

REACTIONS (1)
  - NEUTROPENIA [None]
